FAERS Safety Report 7309602-6 (Version None)
Quarter: 2011Q1

REPORT INFORMATION
  Report Type: 
  Country: None (occurrence: None)
  Receive Date: 20110223
  Receipt Date: 20110214
  Transmission Date: 20110831
  Serious: Yes (Death)
  Sender: FDA-Public Use
  Company Number: JP-BRISTOL-MYERS SQUIBB COMPANY-15558505

PATIENT
  Age: 64 Year
  Sex: Male

DRUGS (3)
  1. PACLITAXEL [Suspect]
     Indication: ADENOCARCINOMA
     Dosage: INJ
  2. BEVACIZUMAB [Suspect]
     Indication: ADENOCARCINOMA
     Dosage: INJ
  3. PARAPLATIN [Suspect]
     Indication: ADENOCARCINOMA
     Route: 041

REACTIONS (2)
  - HAEMOPTYSIS [None]
  - ASPHYXIA [None]
